FAERS Safety Report 8297569-6 (Version None)
Quarter: 2012Q2

REPORT INFORMATION
  Report Type: 
  Country: None (occurrence: None)
  Receive Date: 20120419
  Receipt Date: 20120414
  Transmission Date: 20120825
  Serious: Yes (Other)
  Sender: FDA-Public Use
  Company Number: PHHY2011CH67897

PATIENT
  Age: 34 Year
  Sex: Female

DRUGS (4)
  1. LOSARTAN [Suspect]
     Dosage: 50 MG, UNK
  2. HYDROXYCHLOROQUINE SULFATE [Concomitant]
     Dosage: UNK UKN, UNK
  3. NIFEDIPINE [Concomitant]
     Dosage: UNK UKN, UNK
  4. METOPROLOL TARTRATE [Suspect]
     Dosage: UNK UKN, UNK

REACTIONS (7)
  - FOETAL GROWTH RESTRICTION [None]
  - ANGIOTENSIN CONVERTING ENZYME INHIBITOR FOETOPATHY [None]
  - CAESAREAN SECTION [None]
  - MATERNAL DRUGS AFFECTING FOETUS [None]
  - FOETAL HEART RATE DECREASED [None]
  - OLIGOHYDRAMNIOS [None]
  - MATERNAL EXPOSURE DURING PREGNANCY [None]
